FAERS Safety Report 7390535-4 (Version None)
Quarter: 2011Q2

REPORT INFORMATION
  Report Type: 
  Country: None (occurrence: None)
  Receive Date: 20110403
  Receipt Date: 20091118
  Transmission Date: 20111010
  Serious: Yes (Death, Hospitalization)
  Sender: FDA-Public Use
  Company Number: PHHY2009DE67758

PATIENT
  Sex: Male

DRUGS (1)
  1. EXTAVIA [Suspect]
     Indication: MULTIPLE SCLEROSIS
     Dosage: UNK
     Route: 058
     Dates: start: 20091001, end: 20100801

REACTIONS (7)
  - COLON CANCER [None]
  - ABDOMINAL DISCOMFORT [None]
  - MULTIPLE SCLEROSIS RELAPSE [None]
  - WHEELCHAIR USER [None]
  - NEOPLASM MALIGNANT [None]
  - GAIT DISTURBANCE [None]
  - FATIGUE [None]
